FAERS Safety Report 15386957 (Version 2)
Quarter: 2018Q3

REPORT INFORMATION
  Report Type: Spontaneous
  Country: GR (occurrence: GR)
  Receive Date: 20180914
  Receipt Date: 20180920
  Transmission Date: 20181010
  Serious: Yes (Other)
  Sender: FDA-Public Use
  Company Number: GR-PFIZER INC-2018371293

PATIENT
  Age: 25 Year
  Sex: Female

DRUGS (5)
  1. RAMIPRIL. [Suspect]
     Active Substance: RAMIPRIL
     Dosage: 5 MG, 2X/DAY
     Route: 048
     Dates: start: 2013, end: 2013
  2. CARVEDILOL. [Suspect]
     Active Substance: CARVEDILOL
     Indication: CARDIAC FAILURE
     Dosage: 12.5 MG, 2X/DAY
     Route: 048
     Dates: start: 2013
  3. CARVEDILOL. [Suspect]
     Active Substance: CARVEDILOL
     Dosage: 25 MG, 2X/DAY
     Route: 065
     Dates: start: 2013
  4. RAMIPRIL. [Suspect]
     Active Substance: RAMIPRIL
     Indication: CARDIAC FAILURE
     Dosage: 5 MG, DAILY
     Route: 065
  5. EPLERENONE. [Concomitant]
     Active Substance: EPLERENONE
     Indication: CARDIAC FAILURE
     Dosage: 25 MG, 1X/DAY
     Route: 048
     Dates: start: 2013

REACTIONS (14)
  - Anginal equivalent [Recovered/Resolved with Sequelae]
  - Myocarditis [Recovered/Resolved with Sequelae]
  - Atrophy [Unknown]
  - Chest pain [Recovered/Resolved with Sequelae]
  - Troponin I increased [Unknown]
  - Troponin increased [Unknown]
  - Fibrosis [Unknown]
  - Pyrexia [Unknown]
  - Viral myocarditis [Recovered/Resolved with Sequelae]
  - Left ventricular dysfunction [Unknown]
  - Inflammation [Unknown]
  - Oedema [Unknown]
  - Chest pain [Recovered/Resolved with Sequelae]
  - Ejection fraction decreased [Unknown]

NARRATIVE: CASE EVENT DATE: 2013
